FAERS Safety Report 17130312 (Version 2)
Quarter: 2019Q4

REPORT INFORMATION
  Report Type: Not Available
  Country: US (occurrence: US)
  Receive Date: 20191209
  Receipt Date: 20191218
  Transmission Date: 20200122
  Serious: Yes (Death)
  Sender: FDA-Public Use
  Company Number: US-NEUROCRINE BIOSCIENCES INC.-2019NBI03721

PATIENT
  Age: 37 Year
  Sex: Male

DRUGS (9)
  1. KLONOPIN [Concomitant]
     Active Substance: CLONAZEPAM
  2. RISPERDAL [Concomitant]
     Active Substance: RISPERIDONE
     Dosage: AT NIGHT
     Route: 048
  3. QUETIAPINE. [Concomitant]
     Active Substance: QUETIAPINE
     Dosage: THE PHYSICIAN WAS UNSURE IF THE PATIENT WAS TAKING 400 MG OR 600 MG PRIOR TO DEATH
     Route: 048
  4. INGREZZA [Suspect]
     Active Substance: VALBENAZINE
     Indication: TARDIVE DYSKINESIA
     Route: 048
  5. AMLODIPINE [Concomitant]
     Active Substance: AMLODIPINE BESYLATE
  6. METOPROLOL ER [Concomitant]
     Active Substance: METOPROLOL SUCCINATE
     Route: 048
  7. QUETIAPINE. [Concomitant]
     Active Substance: QUETIAPINE
     Dosage: PATIENT WAS TAKING 400 MG OR 600 MG
     Route: 048
  8. BENZTROPINE. [Concomitant]
     Active Substance: BENZTROPINE
     Dosage: 2 MG 3 TIMES DAILY AS NEEDED
     Route: 048
  9. AMLODIPINE-OLMESARTAN [Concomitant]
     Dosage: 10-40 MG
     Route: 048

REACTIONS (1)
  - Death [Fatal]

NARRATIVE: CASE EVENT DATE: 20191113
